FAERS Safety Report 18364585 (Version 1)
Quarter: 2020Q4

REPORT INFORMATION
  Report Type: Spontaneous
  Country: US (occurrence: US)
  Receive Date: 20201008
  Receipt Date: 20201008
  Transmission Date: 20210114
  Serious: Yes (Life-Threatening, Hospitalization)
  Sender: FDA-Public Use
  Company Number: None

PATIENT
  Age: 79 Year
  Sex: Female
  Weight: 53 kg

DRUGS (1)
  1. APIXABAN [Suspect]
     Active Substance: APIXABAN

REACTIONS (5)
  - Palpitations [None]
  - Headache [None]
  - Dizziness [None]
  - Nausea [None]
  - Haemorrhage intracranial [None]

NARRATIVE: CASE EVENT DATE: 20200108
